FAERS Safety Report 21341160 (Version 1)
Quarter: 2022Q3

REPORT INFORMATION
  Report Type: Spontaneous
  Country: IT (occurrence: IT)
  Receive Date: 20220916
  Receipt Date: 20220916
  Transmission Date: 20221027
  Serious: Yes (Disabling)
  Sender: FDA-Public Use
  Company Number: None

PATIENT
  Age: 17 Year
  Sex: Male
  Weight: 75 kg

DRUGS (1)
  1. FINASTERIDE [Suspect]
     Active Substance: FINASTERIDE
     Indication: Androgenetic alopecia
     Dosage: UNIT DOSE : 0.5 MG  , FREQUENCY TIME : 24 HOUR  , DURATION : 20 YEARS
     Dates: start: 20020120, end: 20220211

REACTIONS (5)
  - Libido decreased [Not Recovered/Not Resolved]
  - Erectile dysfunction [Not Recovered/Not Resolved]
  - Bone pain [Not Recovered/Not Resolved]
  - Semen analysis abnormal [Not Recovered/Not Resolved]
  - Body height decreased [Not Recovered/Not Resolved]

NARRATIVE: CASE EVENT DATE: 20020120
